FAERS Safety Report 25271438 (Version 1)
Quarter: 2025Q2

REPORT INFORMATION
  Report Type: Spontaneous
  Country: BG (occurrence: BG)
  Receive Date: 20250506
  Receipt Date: 20250506
  Transmission Date: 20250717
  Serious: Yes (Other)
  Sender: BRISTOL-MYERS SQUIBB COMPANY
  Company Number: BG-BRISTOL-MYERS SQUIBB COMPANY-2025-061711

PATIENT
  Age: 58 Year
  Sex: Male

DRUGS (2)
  1. FEDRATINIB [Suspect]
     Active Substance: FEDRATINIB
     Indication: Myelofibrosis
     Dosage: DAILY
     Route: 048
     Dates: start: 202409
  2. HYDROXYUREA [Concomitant]
     Active Substance: HYDROXYUREA
     Indication: Product used for unknown indication
     Route: 048
     Dates: start: 202411, end: 202502

REACTIONS (2)
  - Anaemia [Not Recovered/Not Resolved]
  - Leukocytosis [Recovered/Resolved]

NARRATIVE: CASE EVENT DATE: 20241001
